FAERS Safety Report 5481161-2 (Version None)
Quarter: 2007Q4

REPORT INFORMATION
  Report Type: 
  Country: None (occurrence: None)
  Receive Date: 20071010
  Receipt Date: 20071002
  Transmission Date: 20080405
  Serious: Yes (Hospitalization, Other)
  Sender: FDA-Public Use
  Company Number: PHRM2007FR02321

PATIENT
  Age: 80 Year
  Sex: Female

DRUGS (3)
  1. TAREG [Suspect]
     Indication: HYPERTENSION
     Dosage: UNK, UNK
     Route: 048
     Dates: start: 20011009, end: 20011112
  2. TAREG [Suspect]
     Route: 048
     Dates: start: 20070327
  3. COTAREG [Suspect]
     Indication: HYPERTENSION
     Dosage: UNK, UNK
     Route: 048
     Dates: start: 20011113, end: 20070326

REACTIONS (3)
  - COUGH [None]
  - DYSPNOEA [None]
  - PULMONARY FIBROSIS [None]
